FAERS Safety Report 25146420 (Version 1)
Quarter: 2025Q2

REPORT INFORMATION
  Report Type: Spontaneous
  Country: US (occurrence: US)
  Receive Date: 20250401
  Receipt Date: 20250401
  Transmission Date: 20250717
  Serious: Yes (Hospitalization, Other)
  Sender: JOHNSON AND JOHNSON
  Company Number: US-JNJFOC-20250378882

PATIENT
  Age: 47 Year
  Sex: Male

DRUGS (12)
  1. RISPERDAL [Suspect]
     Active Substance: RISPERIDONE
     Indication: Psychotic disorder
     Route: 065
  2. RISPERDAL [Suspect]
     Active Substance: RISPERIDONE
  3. RISPERDAL [Suspect]
     Active Substance: RISPERIDONE
  4. RISPERDAL [Suspect]
     Active Substance: RISPERIDONE
  5. RISPERDAL [Suspect]
     Active Substance: RISPERIDONE
  6. RISPERDAL [Suspect]
     Active Substance: RISPERIDONE
  7. FLUPHENAZINE [Suspect]
     Active Substance: FLUPHENAZINE
     Indication: Schizophrenia
  8. FLUPHENAZINE [Suspect]
     Active Substance: FLUPHENAZINE
     Indication: Intellectual disability
  9. BENZTROPINE [Suspect]
     Active Substance: BENZTROPINE
     Indication: Schizophrenia
  10. BENZTROPINE [Suspect]
     Active Substance: BENZTROPINE
     Indication: Intellectual disability
  11. VALPROIC ACID [Suspect]
     Active Substance: VALPROIC ACID
     Indication: Schizophrenia
  12. VALPROIC ACID [Suspect]
     Active Substance: VALPROIC ACID
     Indication: Intellectual disability

REACTIONS (6)
  - Cerebrovascular accident [Recovering/Resolving]
  - Generalised tonic-clonic seizure [Recovering/Resolving]
  - Hypokalaemia [Unknown]
  - Hyperthermia [Recovering/Resolving]
  - Hypophosphataemia [Unknown]
  - Hypocalcaemia [Unknown]
